FAERS Safety Report 6116422-7 (Version None)
Quarter: 2009Q1

REPORT INFORMATION
  Report Type: 
  Country: None (occurrence: None)
  Receive Date: 20090314
  Receipt Date: 20081218
  Transmission Date: 20090719
  Serious: No
  Sender: FDA-Public Use
  Company Number: US-ABBOTT-08P-163-0494091-00

PATIENT
  Sex: Male
  Weight: 76.726 kg

DRUGS (10)
  1. HUMIRA [Suspect]
     Indication: RHEUMATOID ARTHRITIS
     Dates: start: 20060101
  2. HUMIRA [Suspect]
     Dosage: SYRINGE
  3. ACIPHEX [Concomitant]
     Indication: GASTRIC DISORDER
  4. MELOXIOCAM [Concomitant]
     Indication: DRUG USE FOR UNKNOWN INDICATION
  5. FOLIC ACID [Concomitant]
     Indication: DRUG USE FOR UNKNOWN INDICATION
  6. EVOXAC [Concomitant]
     Indication: DRY MOUTH
  7. FOSAMAX [Concomitant]
     Indication: BONE DISORDER
  8. METHOTREXATE [Concomitant]
     Indication: DRUG USE FOR UNKNOWN INDICATION
     Dosage: 6/W
  9. FUROSEMIDE [Concomitant]
     Indication: DRUG USE FOR UNKNOWN INDICATION
  10. NUMOISYN [Concomitant]
     Indication: DRY MOUTH
     Dosage: LOZENGER

REACTIONS (1)
  - INCORRECT DOSE ADMINISTERED [None]
